APPROVED DRUG PRODUCT: CHILDREN'S CETIRIZINE HYDROCHLORIDE HIVES RELIEF
Active Ingredient: CETIRIZINE HYDROCHLORIDE
Strength: 5MG/5ML
Dosage Form/Route: SOLUTION;ORAL
Application: A090474 | Product #001
Applicant: APOZEAL PHARMACEUTICALS INC
Approved: Mar 30, 2009 | RLD: No | RS: No | Type: OTC